FAERS Safety Report 6263556-2 (Version None)
Quarter: 2009Q3

REPORT INFORMATION
  Report Type: 
  Country: None (occurrence: None)
  Receive Date: 20090710
  Receipt Date: 20090421
  Transmission Date: 20100115
  Serious: No
  Sender: FDA-Public Use
  Company Number: A0779918A

PATIENT
  Age: 67 Year
  Sex: Female

DRUGS (6)
  1. TYKERB [Suspect]
     Indication: BREAST CANCER
     Dosage: 4TAB PER DAY
     Route: 048
     Dates: start: 20090303
  2. POTASSIUM CHLORIDE [Suspect]
     Route: 042
     Dates: start: 20090414, end: 20090414
  3. XELODA [Concomitant]
  4. POTASSIUM CHLORIDE [Concomitant]
  5. AMLODIPINE [Concomitant]
  6. CHEMOTHERAPY [Concomitant]

REACTIONS (3)
  - BLOOD POTASSIUM DECREASED [None]
  - DIARRHOEA [None]
  - HEART RATE INCREASED [None]
